FAERS Safety Report 23749167 (Version 2)
Quarter: 2024Q2

REPORT INFORMATION
  Report Type: Spontaneous
  Country: JP (occurrence: JP)
  Receive Date: 20240416
  Receipt Date: 20240419
  Transmission Date: 20240715
  Serious: Yes (Hospitalization, Other)
  Sender: FDA-Public Use
  Company Number: JP-MLMSERVICE-20240403-PI011281-00306-1

PATIENT
  Age: 7 Decade
  Sex: Female

DRUGS (8)
  1. METHYLPREDNISOLONE [Suspect]
     Active Substance: METHYLPREDNISOLONE
     Indication: Immunosuppressant drug therapy
     Dosage: 3 MG, 1X/DAY
     Dates: start: 1999
  2. PREDNISOLONE [Suspect]
     Active Substance: PREDNISOLONE
     Indication: Immunosuppressant drug therapy
     Dosage: 1 MG (EVERY OTHER DAY)
     Dates: start: 1999, end: 2008
  3. TACROLIMUS [Suspect]
     Active Substance: TACROLIMUS
     Indication: Immunosuppressant drug therapy
     Dosage: GRADUALLY TAPERED DOWN
  4. TACROLIMUS [Suspect]
     Active Substance: TACROLIMUS
     Dosage: 1.2 MG, 1X/DAY
     Dates: start: 1999
  5. TACROLIMUS [Suspect]
     Active Substance: TACROLIMUS
     Dosage: 0.4 MG, 1X/DAY
  6. INSULIN NOS [Concomitant]
     Active Substance: INSULIN NOS
     Indication: Diabetes mellitus
  7. ENTECAVIR [Concomitant]
     Active Substance: ENTECAVIR
     Indication: Hepatitis B
     Dosage: 0.5 MG, 1X/DAY
     Dates: start: 201511, end: 202002
  8. TENOFOVIR ALAFENAMIDE FUMARATE [Concomitant]
     Active Substance: TENOFOVIR ALAFENAMIDE FUMARATE
     Indication: Hepatitis B
     Dosage: 25 MG, 1X/DAY
     Dates: start: 202002

REACTIONS (3)
  - Metastases to lymph nodes [Recovered/Resolved]
  - Colorectal adenocarcinoma [Recovered/Resolved]
  - Hepatocellular carcinoma [Recovered/Resolved]
